FAERS Safety Report 15804589 (Version 1)
Quarter: 2019Q1

REPORT INFORMATION
  Report Type: Spontaneous
  Country: US (occurrence: US)
  Receive Date: 20190109
  Receipt Date: 20190109
  Transmission Date: 20190417
  Serious: No
  Sender: FDA-Public Use
  Company Number: US-GE HEALTHCARE LIFE SCIENCES-2018CSU004617

PATIENT
  Age: 70 Year
  Sex: Female

DRUGS (1)
  1. DATSCAN [Suspect]
     Active Substance: IODINE\IOFLUPANE I-123
     Indication: ESSENTIAL TREMOR
     Dosage: 179.82 MBQ (4.86 MCI), SINGLE
     Route: 042
     Dates: start: 20181113, end: 20181113

REACTIONS (2)
  - Injection site pain [Recovered/Resolved]
  - Injection site paraesthesia [Recovered/Resolved]

NARRATIVE: CASE EVENT DATE: 20181113
